FAERS Safety Report 9188344 (Version 1)
Quarter: 2013Q1

REPORT INFORMATION
  Report Type: Spontaneous
  Country: GB (occurrence: GB)
  Receive Date: 20130325
  Receipt Date: 20130325
  Transmission Date: 20140127
  Serious: Yes (Hospitalization)
  Sender: FDA-Public Use
  Company Number: GB-BRISTOL-MYERS SQUIBB COMPANY-17482308

PATIENT
  Sex: Male

DRUGS (2)
  1. SUSTIVA [Suspect]
     Indication: HIV INFECTION
     Dosage: ORAL LIQUID/SYRUP
  2. TENOFOVIR DISOPROXIL FUMARATE [Concomitant]

REACTIONS (4)
  - Local swelling [Unknown]
  - Treatment noncompliance [None]
  - Malaise [None]
  - Dysphagia [None]
